FAERS Safety Report 15117964 (Version 3)
Quarter: 2018Q4

REPORT INFORMATION
  Report Type: Spontaneous
  Country: US (occurrence: US)
  Receive Date: 20180706
  Receipt Date: 20181122
  Transmission Date: 20190204
  Serious: No
  Sender: FDA-Public Use
  Company Number: US-BIOGEN-2018BI00600889

PATIENT
  Sex: Female

DRUGS (2)
  1. TYSABRI [Suspect]
     Active Substance: NATALIZUMAB
     Indication: MULTIPLE SCLEROSIS
     Dosage: INFUSED FOR OVER 1 HOUR
     Route: 042
     Dates: start: 201805
  2. TYSABRI [Suspect]
     Active Substance: NATALIZUMAB
     Dosage: INFUSED  OVER 1 HOUR
     Route: 042
     Dates: start: 20180525, end: 20180525

REACTIONS (3)
  - Dizziness [Not Recovered/Not Resolved]
  - Drug eruption [Unknown]
  - Nausea [Not Recovered/Not Resolved]
